FAERS Safety Report 9193896 (Version 1)
Quarter: 2013Q1

REPORT INFORMATION
  Report Type: Spontaneous
  Country: US (occurrence: US)
  Receive Date: 20130327
  Receipt Date: 20130327
  Transmission Date: 20140127
  Serious: No
  Sender: FDA-Public Use
  Company Number: US-ASTRAZENECA-2013SE15675

PATIENT
  Age: 93 Year
  Sex: Male
  Weight: 58.1 kg

DRUGS (1)
  1. NEXIUM [Suspect]
     Indication: GASTROOESOPHAGEAL REFLUX DISEASE
     Route: 048
     Dates: start: 201211, end: 20130306

REACTIONS (3)
  - Eating disorder [Recovering/Resolving]
  - Hyperchlorhydria [Recovering/Resolving]
  - Abdominal pain upper [Recovering/Resolving]
